FAERS Safety Report 9313151 (Version 1)
Quarter: 2013Q2

REPORT INFORMATION
  Report Type: Spontaneous
  Country: US (occurrence: US)
  Receive Date: 20130528
  Receipt Date: 20130528
  Transmission Date: 20140414
  Serious: No
  Sender: FDA-Public Use
  Company Number: US-ABBOTT-13P-163-1050495-00

PATIENT
  Age: 54 Year
  Sex: Male
  Weight: 77.18 kg

DRUGS (2)
  1. ANDROGEL 1.62% [Suspect]
     Indication: BLOOD TESTOSTERONE DECREASED
     Dates: start: 2012, end: 2012
  2. SERTRALINE [Concomitant]
     Indication: DEPRESSION

REACTIONS (2)
  - Hypothyroidism [Unknown]
  - Blood testosterone decreased [Recovered/Resolved]
